FAERS Safety Report 6711805-6 (Version None)
Quarter: 2010Q2

REPORT INFORMATION
  Report Type: 
  Country: None (occurrence: None)
  Receive Date: 20100505
  Receipt Date: 20100413
  Transmission Date: 20101027
  Serious: Yes (Hospitalization)
  Sender: FDA-Public Use
  Company Number: US-ROCHE-700733

PATIENT
  Age: 64 Year
  Sex: Male
  Weight: 114.1 kg

DRUGS (10)
  1. BEVACIZUMAB [Suspect]
     Indication: CHEMOTHERAPY
     Route: 042
     Dates: start: 20100331
  2. DOCETAXEL [Suspect]
     Indication: CHEMOTHERAPY
     Route: 042
     Dates: start: 20100331
  3. CISPLATIN [Suspect]
     Indication: CHEMOTHERAPY
     Route: 042
     Dates: start: 20100331
  4. IRINOTECAN HYDROCHLORIDE [Suspect]
     Indication: CHEMOTHERAPY
     Route: 042
     Dates: start: 20100331
  5. XANAX [Concomitant]
     Route: 048
  6. NORVASC [Concomitant]
     Route: 048
  7. ASPIRIN [Concomitant]
     Route: 048
  8. BACLOFEN [Concomitant]
  9. PLAVIX [Concomitant]
     Route: 048
  10. CYMBALTA [Concomitant]
     Route: 048

REACTIONS (5)
  - DEHYDRATION [None]
  - FATIGUE [None]
  - HYPOPHAGIA [None]
  - NAUSEA [None]
  - VOMITING [None]
